FAERS Safety Report 9302191 (Version 2)
Quarter: 2013Q4

REPORT INFORMATION
  Report Type: Spontaneous
  Country: US (occurrence: US)
  Receive Date: 20130522
  Receipt Date: 20131108
  Transmission Date: 20140711
  Serious: Yes (Hospitalization, Other)
  Sender: FDA-Public Use
  Company Number: US-B.I. PHARMACEUTICALS,INC./RIDGEFIELD-2013-BI-14113BP

PATIENT
  Age: 60 Year
  Sex: Male
  Weight: 97.98 kg

DRUGS (11)
  1. PRADAXA [Suspect]
     Indication: ANTICOAGULANT THERAPY
     Dosage: 300 MG
     Route: 048
     Dates: start: 20110413, end: 20110820
  2. PRADAXA [Suspect]
     Indication: ATRIAL FIBRILLATION
  3. AMIODARONE [Concomitant]
     Dosage: 200 MG
     Route: 048
  4. CARVEDILOL [Concomitant]
     Dosage: 25 MG
  5. CYCLOBENZAPRINE [Concomitant]
  6. METOPROLOL [Concomitant]
     Dosage: 100 MG
  7. POTASSIUM CHLORIDE [Concomitant]
     Dosage: 20 MEQ
  8. RAMIPRIL [Concomitant]
     Dosage: 10 MG
  9. SIMVASTATIN [Concomitant]
     Dosage: 80 MG
  10. FUROSEMIDE [Concomitant]
     Dosage: 40 MG
  11. TYLENOL [Concomitant]

REACTIONS (4)
  - Gastrointestinal haemorrhage [Unknown]
  - Anaemia [Unknown]
  - Renal failure acute [Unknown]
  - International normalised ratio increased [Unknown]
